FAERS Safety Report 9266480 (Version 3)
Quarter: 2013Q2

REPORT INFORMATION
  Report Type: Spontaneous
  Country: FR (occurrence: FR)
  Receive Date: 20130502
  Receipt Date: 20130515
  Transmission Date: 20140414
  Serious: Yes (Life-Threatening, Hospitalization, Other)
  Sender: FDA-Public Use
  Company Number: FR-JNJFOC-20130414626

PATIENT
  Age: 54 Year
  Sex: Female
  Weight: 63 kg

DRUGS (17)
  1. XARELTO [Suspect]
     Indication: CEREBROVASCULAR ACCIDENT PROPHYLAXIS
     Route: 048
     Dates: end: 20130401
  2. XARELTO [Suspect]
     Indication: CEREBROVASCULAR ACCIDENT PROPHYLAXIS
     Route: 048
     Dates: start: 20130422
  3. XARELTO [Suspect]
     Indication: ATRIAL FIBRILLATION
     Route: 048
     Dates: end: 20130401
  4. XARELTO [Suspect]
     Indication: ATRIAL FIBRILLATION
     Route: 048
     Dates: start: 20130422
  5. TINZAPARIN SODIUM [Concomitant]
     Route: 065
  6. LOVENOX [Concomitant]
     Dosage: DOSE: 0.2
     Route: 065
     Dates: start: 20130403, end: 20130411
  7. LOVENOX [Concomitant]
     Dosage: DOSE: 0.6 (MORNING AND EVENING)
     Route: 065
     Dates: start: 201304
  8. CARDENSIEL [Concomitant]
     Route: 065
  9. KARDEGIC [Concomitant]
     Route: 065
  10. BISOPROLOL [Concomitant]
     Route: 065
  11. ISKEDYL [Concomitant]
     Route: 065
  12. FUROSEMIDE [Concomitant]
     Route: 065
  13. ATORVASTATIN [Concomitant]
     Route: 065
  14. LYRICA [Concomitant]
     Route: 065
  15. LANTUS [Concomitant]
     Route: 065
  16. NOVORAPID [Concomitant]
     Route: 065
  17. LEVOTHYROX [Concomitant]
     Route: 065

REACTIONS (5)
  - Hepatic haematoma [Unknown]
  - Shock [Unknown]
  - Peritoneal haemorrhage [Unknown]
  - Renal failure acute [Unknown]
  - Anaemia [Unknown]
